FAERS Safety Report 4967512-3 (Version None)
Quarter: 2006Q2

REPORT INFORMATION
  Report Type: 
  Country: None (occurrence: None)
  Receive Date: 20060407
  Receipt Date: 20060407
  Transmission Date: 20061013
  Serious: No
  Sender: FDA-Public Use
  Company Number: None

PATIENT

DRUGS (2)
  1. RYNATAN (R-TANNA) 5/4.5 MG PRASCO [Suspect]
     Indication: NASAL CONGESTION
     Dosage: 2.5-10 ML Q12 HRS PO
     Route: 048
     Dates: start: 20050101
  2. TRIOTANN 5/2/125 MG PRASCO [Suspect]
     Indication: NASAL CONGESTION
     Dosage: 2.5-10 ML Q12HR PO
     Route: 048

REACTIONS (3)
  - CIRCUMSTANCE OR INFORMATION CAPABLE OF LEADING TO MEDICATION ERROR [None]
  - MEDICATION ERROR [None]
  - PHARMACEUTICAL PRODUCT COMPLAINT [None]
